FAERS Safety Report 13122640 (Version 3)
Quarter: 2017Q1

REPORT INFORMATION
  Report Type: Spontaneous
  Country: DE (occurrence: DE)
  Receive Date: 20170117
  Receipt Date: 20170214
  Transmission Date: 20170428
  Serious: Yes (Hospitalization)
  Sender: FDA-Public Use
  Company Number: DE-TAKEDA-2017TUS000967

PATIENT
  Age: 38 Year
  Sex: Female
  Weight: 80 kg

DRUGS (5)
  1. CITALOPRAM [Concomitant]
     Active Substance: CITALOPRAM HYDROBROMIDE
     Indication: DEPRESSION
     Dosage: 10 MG, QD
  2. FLUCONAZOLE. [Concomitant]
     Active Substance: FLUCONAZOLE
     Indication: OESOPHAGEAL CANDIDIASIS
     Dosage: 200 MG, QD
     Dates: end: 20161227
  3. ENTYVIO [Suspect]
     Active Substance: VEDOLIZUMAB
     Indication: CROHN^S DISEASE
     Dosage: 300 MG, UNK
     Route: 042
     Dates: start: 20161114, end: 20161128
  4. PREDNISOLONE. [Concomitant]
     Active Substance: PREDNISOLONE
     Dosage: 30 MG, UNK
  5. PANTOPRAZOLE [Concomitant]
     Active Substance: PANTOPRAZOLE SODIUM
     Indication: REGURGITATION
     Dosage: 40 MG, QD

REACTIONS (11)
  - Dizziness [Recovering/Resolving]
  - Adverse event [Unknown]
  - Arthralgia [Unknown]
  - Oral candidiasis [Unknown]
  - Nausea [Unknown]
  - Myalgia [Unknown]
  - Pruritus [Recovering/Resolving]
  - Blood pressure increased [Recovering/Resolving]
  - Heart rate increased [Recovering/Resolving]
  - Chills [Unknown]
  - Speech disorder [Recovering/Resolving]

NARRATIVE: CASE EVENT DATE: 20161231
